FAERS Safety Report 19141685 (Version 12)
Quarter: 2022Q2

REPORT INFORMATION
  Report Type: Report from Study
  Country: US (occurrence: US)
  Receive Date: 20210415
  Receipt Date: 20220530
  Transmission Date: 20220721
  Serious: Yes (Life-Threatening, Other)
  Sender: FDA-Public Use
  Company Number: US-NOVARTISPH-NVSC2021US085481

PATIENT
  Age: 53 Year
  Sex: Male

DRUGS (2)
  1. ENTRESTO [Suspect]
     Active Substance: SACUBITRIL\VALSARTAN
     Indication: Cardiac failure
     Dosage: 1 DOSAGE FORM, BID
     Route: 048
     Dates: start: 20210325
  2. COUMADIN [Concomitant]
     Active Substance: WARFARIN SODIUM
     Indication: Product used for unknown indication
     Dosage: UNK
     Route: 065

REACTIONS (24)
  - Cardiac flutter [Recovered/Resolved]
  - Pulmonary congestion [Recovered/Resolved]
  - Apnoea [Recovered/Resolved]
  - Choking sensation [Recovered/Resolved]
  - Cardiac failure congestive [Recovering/Resolving]
  - Ejection fraction decreased [Recovering/Resolving]
  - Blood glucose decreased [Recovered/Resolved]
  - Weight decreased [Recovering/Resolving]
  - International normalised ratio abnormal [Recovering/Resolving]
  - Dyspnoea [Recovered/Resolved]
  - Somnolence [Recovering/Resolving]
  - Ligament sprain [Recovered/Resolved]
  - Pain in extremity [Recovered/Resolved]
  - Gait inability [Recovered/Resolved]
  - Depression [Recovered/Resolved]
  - Stress [Recovered/Resolved]
  - Dysstasia [Recovering/Resolving]
  - Pain in extremity [Recovering/Resolving]
  - Pollakiuria [Unknown]
  - Eating disorder [Recovered/Resolved]
  - Depressed mood [Recovered/Resolved]
  - Memory impairment [Unknown]
  - Fatigue [Recovering/Resolving]
  - Dizziness [Recovered/Resolved]

NARRATIVE: CASE EVENT DATE: 20210325
